FAERS Safety Report 12510321 (Version 1)
Quarter: 2016Q2

REPORT INFORMATION
  Report Type: Spontaneous
  Country: US (occurrence: US)
  Receive Date: 20160629
  Receipt Date: 20160629
  Transmission Date: 20160815
  Serious: No
  Sender: FDA-Public Use
  Company Number: US-RB-079506-15

PATIENT
  Age: 72 Year
  Sex: Female

DRUGS (2)
  1. MUCINEX [Suspect]
     Active Substance: GUAIFENESIN
     Indication: EMPHYSEMA
  2. MUCINEX [Suspect]
     Active Substance: GUAIFENESIN
     Indication: BRONCHITIS
     Dosage: 600MG. ,BID
     Route: 065

REACTIONS (2)
  - Incorrect drug administration duration [Unknown]
  - Product use issue [Unknown]
